FAERS Safety Report 9276497 (Version 1)
Quarter: 2013Q2

REPORT INFORMATION
  Report Type: Report from Study
  Country: US (occurrence: US)
  Receive Date: 20130507
  Receipt Date: 20130507
  Transmission Date: 20140414
  Serious: Yes (Hospitalization)
  Sender: FDA-Public Use
  Company Number: PHHO2013US005955

PATIENT
  Age: 66 Year
  Sex: Male
  Weight: 69.5 kg

DRUGS (3)
  1. AFINITOR [Suspect]
     Indication: WALDENSTROM^S MACROGLOBULINAEMIA
     Dosage: 10 MG, QD
     Route: 048
     Dates: start: 20130404
  2. RITUXIMAB [Suspect]
     Indication: WALDENSTROM^S MACROGLOBULINAEMIA
     Dosage: 375 MG/M2, QW
     Route: 042
     Dates: start: 20130404
  3. BORTEZOMIB [Suspect]
     Indication: WALDENSTROM^S MACROGLOBULINAEMIA
     Dosage: 1.6 MG/M2, QW
     Route: 042
     Dates: start: 20130404

REACTIONS (2)
  - Deafness unilateral [Unknown]
  - Vertigo [Unknown]
